FAERS Safety Report 23092529 (Version 2)
Quarter: 2023Q4

REPORT INFORMATION
  Report Type: Spontaneous
  Country: JP (occurrence: JP)
  Receive Date: 20231021
  Receipt Date: 20231030
  Transmission Date: 20240109
  Serious: Yes (Hospitalization, Other)
  Sender: FDA-Public Use
  Company Number: JP-MACLEODS PHARMACEUTICALS US LTD-MAC2023043894

PATIENT

DRUGS (3)
  1. DONEPEZIL [Suspect]
     Active Substance: DONEPEZIL
     Indication: Product used for unknown indication
     Dosage: UNK
     Route: 065
  2. DONEPEZIL [Suspect]
     Active Substance: DONEPEZIL
     Dosage: 150 MILLIGRAM, SINGLE, AT ONCE 15 TABLETS
     Route: 065
  3. CILOSTAZOL [Concomitant]
     Active Substance: CILOSTAZOL
     Indication: Product used for unknown indication
     Dosage: UNK
     Route: 065

REACTIONS (8)
  - Decreased activity [Unknown]
  - Mydriasis [Not Recovered/Not Resolved]
  - Fall [Unknown]
  - Blood pressure decreased [Recovered/Resolved]
  - Tremor [Not Recovered/Not Resolved]
  - Drug level increased [Recovering/Resolving]
  - Miosis [Recovered/Resolved]
  - Accidental overdose [Recovering/Resolving]
